FAERS Safety Report 8044018-9 (Version None)
Quarter: 2011Q4

REPORT INFORMATION
  Report Type: 
  Country: None (occurrence: None)
  Receive Date: 20111209
  Receipt Date: 20111003
  Transmission Date: 20120403
  Serious: No
  Sender: FDA-Public Use
  Company Number: 2011SP046622

PATIENT
  Age: 65 Year
  Weight: 79.3795 kg

DRUGS (2)
  1. COZAAR [Suspect]
     Indication: PRODUCT USED FOR UNKNOWN INDICATION
  2. VICTRELIS [Suspect]
     Indication: PRODUCT USED FOR UNKNOWN INDICATION

REACTIONS (19)
  - BLOOD GLUCOSE DECREASED [None]
  - DYSPHAGIA [None]
  - WEIGHT DECREASED [None]
  - VULVOVAGINAL SWELLING [None]
  - BLOOD URINE PRESENT [None]
  - NAUSEA [None]
  - ASTHENIA [None]
  - EYE PAIN [None]
  - EYE IRRITATION [None]
  - SOMNOLENCE [None]
  - ALOPECIA [None]
  - PHOTOPHOBIA [None]
  - UPPER-AIRWAY COUGH SYNDROME [None]
  - BLADDER SPASM [None]
  - UNDERDOSE [None]
  - DRY EYE [None]
  - STOMATITIS [None]
  - PRURITUS [None]
  - DYSGEUSIA [None]
